FAERS Safety Report 16827679 (Version 4)
Quarter: 2020Q1

REPORT INFORMATION
  Report Type: Spontaneous
  Country: US (occurrence: US)
  Receive Date: 20190919
  Receipt Date: 20200306
  Transmission Date: 20200409
  Serious: Yes (Other)
  Sender: FDA-Public Use
  Company Number: US-PFIZER INC-2018480800

PATIENT
  Age: 63 Year
  Sex: Male

DRUGS (2)
  1. LYRICA [Suspect]
     Active Substance: PREGABALIN
     Indication: DIABETIC NEUROPATHY
  2. LYRICA [Suspect]
     Active Substance: PREGABALIN
     Indication: BACK PAIN
     Dosage: 150 MG, 2X/DAY (1 CAPSULE BID AS NEEDED)
     Route: 048
     Dates: end: 2019

REACTIONS (5)
  - Confusional state [Unknown]
  - Feeling abnormal [Unknown]
  - Blindness [Unknown]
  - Cerebrovascular accident [Unknown]
  - Crying [Unknown]

NARRATIVE: CASE EVENT DATE: 2019
